FAERS Safety Report 20807828 (Version 1)
Quarter: 2022Q2

REPORT INFORMATION
  Report Type: Spontaneous
  Country: US (occurrence: None)
  Receive Date: 20220509
  Receipt Date: 20220509
  Transmission Date: 20220721
  Serious: No
  Sender: FDA-Public Use
  Company Number: None

PATIENT
  Age: 74 Year
  Sex: Male
  Weight: 172 kg

DRUGS (1)
  1. TAMSULOSIN HYDROCHLORIDE [Suspect]
     Active Substance: TAMSULOSIN HYDROCHLORIDE
     Indication: Benign prostatic hyperplasia
     Dosage: FREQUENCY : AT BEDTIME;?
     Route: 048
     Dates: start: 20211207, end: 20211217

REACTIONS (4)
  - Hypoaesthesia oral [None]
  - Hypoaesthesia oral [None]
  - Pharyngeal swelling [None]
  - Swollen tongue [None]

NARRATIVE: CASE EVENT DATE: 20211216
